FAERS Safety Report 12161198 (Version 1)
Quarter: 2016Q1

REPORT INFORMATION
  Report Type: Spontaneous
  Country: NL (occurrence: NL)
  Receive Date: 20160308
  Receipt Date: 20160308
  Transmission Date: 20160526
  Serious: Yes (Life-Threatening)
  Sender: FDA-Public Use
  Company Number: NL-B.I. PHARMACEUTICALS,INC./RIDGEFIELD-2016-BI-14605YA

PATIENT
  Age: 70 Year
  Sex: Male
  Weight: 105 kg

DRUGS (6)
  1. METOPROLOL. [Suspect]
     Active Substance: METOPROLOL
     Dosage: DOSE PER APP: 25, UNIT NOT REPORTED
     Route: 065
  2. TAMSULOSIN [Suspect]
     Active Substance: TAMSULOSIN
     Dosage: FORMULATION: MODIFIED RELEASE CAPSULE, HARD
     Route: 065
     Dates: end: 201511
  3. CARBASALAATCALCIUM [Concomitant]
     Active Substance: CARBASALATE
     Indication: PRODUCT USED FOR UNKNOWN INDICATION
     Dosage: 100 MG
     Route: 065
     Dates: start: 20150415
  4. TAMSULOSIN [Suspect]
     Active Substance: TAMSULOSIN
     Indication: BENIGN PROSTATIC HYPERPLASIA
     Dosage: 0.2286 MG
     Route: 065
     Dates: start: 20150901
  5. METOPROLOL. [Suspect]
     Active Substance: METOPROLOL
     Indication: HYPERTENSION
     Dosage: 28.5714 MG
     Route: 065
     Dates: start: 20111001
  6. METOPROLOL. [Suspect]
     Active Substance: METOPROLOL
     Dosage: DOSE PER APP AND DAILY DOSE: 25, UNIT NOT REPORTED
     Route: 065

REACTIONS (4)
  - Angina pectoris [Recovered/Resolved]
  - Back pain [Recovered/Resolved]
  - Chest pain [Recovered/Resolved]
  - Drug interaction [Unknown]

NARRATIVE: CASE EVENT DATE: 20151029
